FAERS Safety Report 14457330 (Version 4)
Quarter: 2018Q3

REPORT INFORMATION
  Report Type: Spontaneous
  Country: US (occurrence: US)
  Receive Date: 20180130
  Receipt Date: 20180831
  Transmission Date: 20181010
  Serious: Yes (Life-Threatening)
  Sender: FDA-Public Use
  Company Number: US-VIFOR (INTERNATIONAL) INC.-VIT-2018-00980

PATIENT
  Age: 17 Year
  Sex: Male
  Weight: 65.5 kg

DRUGS (12)
  1. VENOFER [Suspect]
     Active Substance: IRON SUCROSE
     Route: 040
     Dates: start: 20171229, end: 20180112
  2. VENOFER [Suspect]
     Active Substance: IRON SUCROSE
     Route: 040
     Dates: start: 20180309
  3. MIRCERA [Suspect]
     Active Substance: METHOXY POLYETHYLENE GLYCOL-EPOETIN BETA
     Route: 040
     Dates: start: 20171229
  4. VENOFER [Suspect]
     Active Substance: IRON SUCROSE
     Route: 040
     Dates: start: 20180303
  5. AMLODIPINE [Concomitant]
     Active Substance: AMLODIPINE BESYLATE
     Route: 048
  6. MIRCERA [Suspect]
     Active Substance: METHOXY POLYETHYLENE GLYCOL-EPOETIN BETA
     Route: 040
     Dates: start: 20180112, end: 20180112
  7. VENOFER [Suspect]
     Active Substance: IRON SUCROSE
     Route: 040
     Dates: start: 20180306
  8. VENOFER [Suspect]
     Active Substance: IRON SUCROSE
     Route: 040
     Dates: start: 20180313
  9. MIRCERA [Suspect]
     Active Substance: METHOXY POLYETHYLENE GLYCOL-EPOETIN BETA
     Route: 040
     Dates: start: 20171215
  10. MIRCERA [Suspect]
     Active Substance: METHOXY POLYETHYLENE GLYCOL-EPOETIN BETA
     Indication: NEPHROGENIC ANAEMIA
     Route: 040
     Dates: start: 20171202
  11. VENOFER [Suspect]
     Active Substance: IRON SUCROSE
     Indication: IRON DEFICIENCY
     Route: 040
     Dates: start: 20171202, end: 20171211
  12. HECTOROL [Concomitant]
     Active Substance: DOXERCALCIFEROL
     Route: 040

REACTIONS (11)
  - Flushing [Recovered/Resolved]
  - Angioedema [Recovered/Resolved]
  - Anxiety [Recovered/Resolved]
  - Respiratory distress [Recovered/Resolved]
  - Dyspnoea [Recovered/Resolved]
  - Cough [Recovered/Resolved]
  - Tachycardia [Recovered/Resolved]
  - Urticaria [Recovered/Resolved]
  - Venous oxygen saturation decreased [Recovered/Resolved]
  - Pruritus [Recovered/Resolved]
  - Volume blood decreased [Recovered/Resolved]

NARRATIVE: CASE EVENT DATE: 20171215
